FAERS Safety Report 20911133 (Version 2)
Quarter: 2022Q3

REPORT INFORMATION
  Report Type: Report from Study
  Country: CN (occurrence: CN)
  Receive Date: 20220603
  Receipt Date: 20220802
  Transmission Date: 20221027
  Serious: Yes (Hospitalization, Other)
  Sender: FDA-Public Use
  Company Number: CN-BRISTOL-MYERS SQUIBB COMPANY-2022-047201

PATIENT
  Age: 69 Year
  Sex: Female
  Weight: 74.1 kg

DRUGS (8)
  1. AZACITIDINE [Suspect]
     Active Substance: AZACITIDINE
     Indication: Acute myeloid leukaemia
     Dosage: THE FIRST 7 DAY OF EACH 28 DAY CYCLE
     Route: 058
     Dates: start: 20220319, end: 20220428
  2. VENETOCLAX [Suspect]
     Active Substance: VENETOCLAX
     Indication: Acute myeloid leukaemia
     Dosage: 1 IN 1 D
     Route: 048
     Dates: start: 20220319, end: 20220408
  3. VENETOCLAX [Suspect]
     Active Substance: VENETOCLAX
     Dosage: 70 MG,1 IN 1 D
     Route: 048
     Dates: start: 20220409, end: 20220515
  4. MEROPENEM [Concomitant]
     Active Substance: MEROPENEM
     Indication: Infection prophylaxis
     Route: 041
     Dates: start: 20220513, end: 20220513
  5. MEROPENEM [Concomitant]
     Active Substance: MEROPENEM
     Route: 041
     Dates: start: 20220514, end: 20220514
  6. MEROPENEM [Concomitant]
     Active Substance: MEROPENEM
     Route: 041
     Dates: start: 20220515, end: 20220515
  7. MEROPENEM [Concomitant]
     Active Substance: MEROPENEM
     Route: 041
  8. AMINOCAPROIC ACID [Concomitant]
     Active Substance: AMINOCAPROIC ACID

REACTIONS (9)
  - Pancytopenia [Not Recovered/Not Resolved]
  - Subdural haemorrhage [Not Recovered/Not Resolved]
  - Arteriosclerosis [Unknown]
  - Pericardial effusion [Unknown]
  - Sepsis [Unknown]
  - Subdural effusion [Unknown]
  - Lymph node calcification [Unknown]
  - Renal disorder [Unknown]
  - Adrenal disorder [Unknown]

NARRATIVE: CASE EVENT DATE: 20220516
